FAERS Safety Report 17355452 (Version 2)
Quarter: 2020Q2

REPORT INFORMATION
  Report Type: Report from Study
  Country: US (occurrence: US)
  Receive Date: 20200131
  Receipt Date: 20200403
  Transmission Date: 20200713
  Serious: Yes (Hospitalization)
  Sender: FDA-Public Use
  Company Number: US-VERTEX PHARMACEUTICALS-2019-013344

PATIENT
  Age: 41 Year
  Sex: Male

DRUGS (1)
  1. TRIKAFTA [Suspect]
     Active Substance: ELEXACAFTOR\IVACAFTOR\TEZACAFTOR
     Indication: CYSTIC FIBROSIS
     Dosage: 100MG ELEXACAFTOR/50MG TEZACAFTOR/75MGIVACAFTOR AND 150MG IVACAFTOR TABS (FREQ UNK)
     Route: 048
     Dates: start: 20191123

REACTIONS (8)
  - Renal disorder [Unknown]
  - Pancreatic disorder [Unknown]
  - Cholelithiasis [Unknown]
  - Rash [Recovered/Resolved]
  - Rash pruritic [Recovered/Resolved]
  - Liver disorder [Unknown]
  - Lung disorder [Unknown]
  - Alopecia [Unknown]

NARRATIVE: CASE EVENT DATE: 201912
